FAERS Safety Report 8356273-6 (Version None)
Quarter: 2012Q2

REPORT INFORMATION
  Report Type: 
  Country: None (occurrence: None)
  Receive Date: 20120510
  Receipt Date: 20120426
  Transmission Date: 20120825
  Serious: Yes (Other)
  Sender: FDA-Public Use
  Company Number: JPI-P-021166

PATIENT
  Age: 65 Year
  Sex: Female

DRUGS (2)
  1. XYREM [Suspect]
     Indication: CATAPLEXY
     Dosage: 4.5;9 GM (2.25 GM, 2 IN 1 D), ORAL
     Route: 048
     Dates: start: 20081229
  2. XYREM [Suspect]
     Indication: CATAPLEXY
     Dosage: 4.5;9 GM (2.25 GM, 2 IN 1 D), ORAL
     Route: 048
     Dates: start: 20090914

REACTIONS (14)
  - ABDOMINAL DISCOMFORT [None]
  - SOMNOLENCE [None]
  - DRY EYE [None]
  - FALL [None]
  - OCULAR HYPERAEMIA [None]
  - DIZZINESS [None]
  - FATIGUE [None]
  - NAUSEA [None]
  - PAIN [None]
  - RESTLESSNESS [None]
  - BACK PAIN [None]
  - HIP FRACTURE [None]
  - MIDDLE INSOMNIA [None]
  - EYE SWELLING [None]
